FAERS Safety Report 9095582 (Version 2)
Quarter: 2013Q1

REPORT INFORMATION
  Report Type: Spontaneous
  Country: US (occurrence: None)
  Receive Date: 20130122
  Receipt Date: 20130201
  Transmission Date: 20140127
  Serious: Yes (Hospitalization)
  Sender: FDA-Public Use
  Company Number: DKLU1087958

PATIENT
  Age: 25 Month
  Sex: Female

DRUGS (2)
  1. SABRIL (FOR ORAL SOLUTION) (SABRIL) (VIGABATRIN) (500 MG, POWDER FOR ORAL SOLUTION) [Suspect]
     Indication: INFANTILE SPASMS
     Route: 048
     Dates: start: 20110916
  2. TOPAMAX (TOPIRAMATE) [Concomitant]

REACTIONS (2)
  - Cerebrovascular accident [None]
  - Upper respiratory tract infection [None]
